FAERS Safety Report 13777328 (Version 1)
Quarter: 2017Q3

REPORT INFORMATION
  Report Type: Report from Study
  Country: None (occurrence: ZA)
  Receive Date: 20170721
  Receipt Date: 20170721
  Transmission Date: 20171127
  Serious: Yes (Hospitalization, Other)
  Sender: FDA-Public Use
  Company Number: ZA-ABBVIE-17P-143-1916467-00

PATIENT
  Age: 31 Year
  Sex: Male

DRUGS (7)
  1. ASACOL [Concomitant]
     Active Substance: MESALAMINE
     Indication: PRODUCT USED FOR UNKNOWN INDICATION
  2. HUMIRA [Suspect]
     Active Substance: ADALIMUMAB
     Route: 058
     Dates: start: 201703, end: 201703
  3. MEZAVANT [Concomitant]
     Active Substance: MESALAMINE
     Indication: PRODUCT USED FOR UNKNOWN INDICATION
  4. HUMIRA [Suspect]
     Active Substance: ADALIMUMAB
     Indication: COLITIS ULCERATIVE
     Route: 058
     Dates: start: 20170203, end: 2017
  5. HUMIRA [Suspect]
     Active Substance: ADALIMUMAB
     Route: 058
     Dates: start: 20170316, end: 20170316
  6. HUMIRA [Suspect]
     Active Substance: ADALIMUMAB
     Route: 058
  7. AZATHIOPRINE. [Concomitant]
     Active Substance: AZATHIOPRINE
     Indication: PRODUCT USED FOR UNKNOWN INDICATION

REACTIONS (11)
  - Mucosal inflammation [Unknown]
  - Nausea [Unknown]
  - Colitis ulcerative [Unknown]
  - Abscess intestinal [Unknown]
  - Large intestinal haemorrhage [Unknown]
  - Malaise [Unknown]
  - Rectal haemorrhage [Unknown]
  - Gastrointestinal inflammation [Unknown]
  - Gastrointestinal mucosa hyperaemia [Unknown]
  - General physical health deterioration [Unknown]
  - Colitis [Unknown]

NARRATIVE: CASE EVENT DATE: 20170322
